FAERS Safety Report 8500222-4 (Version None)
Quarter: 2012Q3

REPORT INFORMATION
  Report Type: 
  Country: None (occurrence: None)
  Receive Date: 20120710
  Receipt Date: 20120704
  Transmission Date: 20120928
  Serious: Yes (Death)
  Sender: FDA-Public Use
  Company Number: JP-SANOFI-AVENTIS-2012SA047928

PATIENT
  Age: 75 Year
  Sex: Male

DRUGS (5)
  1. FLUOROURACIL [Suspect]
     Dosage: RECEIVED 250 MG/DAY ON DAYS 1 TO 5, WEEKLY
     Route: 065
  2. THERAPEUTIC RADIOPHARMACEUTICALS [Suspect]
     Dosage: DOSE: 40 GY
     Route: 065
  3. DOCETAXEL [Suspect]
     Dosage: ON DAY 1 ONLY
     Route: 065
  4. FLUOROURACIL [Suspect]
     Route: 065
  5. CISPLATIN [Suspect]
     Route: 065

REACTIONS (12)
  - BRONCHOPULMONARY ASPERGILLOSIS [None]
  - HYPERCAPNIA [None]
  - HYPOALBUMINAEMIA [None]
  - INTERSTITIAL LUNG DISEASE [None]
  - PLATELET COUNT DECREASED [None]
  - COAGULOPATHY [None]
  - RESPIRATORY FAILURE [None]
  - PYREXIA [None]
  - HISTIOCYTOSIS HAEMATOPHAGIC [None]
  - PNEUMONIA [None]
  - FEBRILE NEUTROPENIA [None]
  - WHITE BLOOD CELL COUNT DECREASED [None]
